FAERS Safety Report 4742512-7 (Version None)
Quarter: 2005Q3

REPORT INFORMATION
  Report Type: 
  Country: None (occurrence: None)
  Receive Date: 20050808
  Receipt Date: 20050726
  Transmission Date: 20060218
  Serious: Yes (Death, Life-Threatening, Hospitalization, Other)
  Sender: FDA-Public Use
  Company Number: US-2005-008986

PATIENT
  Age: 55 Year
  Sex: Male
  Weight: 102.5 kg

DRUGS (27)
  1. ULTRAVIST 300 [Suspect]
     Indication: COMPUTERISED TOMOGRAM ABDOMEN
     Dosage: 100 ML, AT 3 ML/SEC 1 DOSE, INTRAVENOUS
     Route: 042
     Dates: start: 20050524, end: 20050524
  2. CONTRAST MEDIA [Suspect]
     Indication: COMPUTERISED TOMOGRAM ABDOMEN
     Dosage: 20 ML, 1 DOSE, ORAL
     Route: 048
     Dates: start: 20050524, end: 20050524
  3. BENZOTROPINE (BENZATROPINE MESILATE) [Concomitant]
  4. CLONIDINE [Concomitant]
  5. CYPROHEPTADINE HCL [Concomitant]
  6. DIATRIZOATE MEGLU66%/DIATRIZOATE [Concomitant]
  7. FELODIPINE  (FELODIINE) [Concomitant]
  8. FLUCONAZOLE [Concomitant]
  9. GUAIFENESIN (GUAIFENESIN) [Concomitant]
  10. HALOPERIDOL [Concomitant]
  11. HALOPERIDOL DECANOATE [Concomitant]
  12. IBUPROFEN [Concomitant]
  13. NICOTINE POLACRILEX (NICOTINE POLACRILEX) [Concomitant]
  14. OMEPRAZOLE [Concomitant]
  15. DILANTIN  /AUST/(PHENYTOIN SODIUM) [Concomitant]
  16. POTASIUM CHLORIDE [Concomitant]
  17. PROPRANOLOL [Concomitant]
  18. PSYLLIUM (PLANTAGO AFRA) POWDER [Concomitant]
  19. QUWTIAPINE FUMARATE (QUETIAPINE FUMARATE) [Concomitant]
  20. SERTRALINE HCL [Concomitant]
  21. SIMETHICONE (SIMETICONE) [Concomitant]
  22. TOPAMAX [Concomitant]
  23. TRAZADONE  HYDROCHLORIDE (TRAZADONE HYDROCHLORIDE) [Concomitant]
  24. VITAMIN B COMPLEX WITH C [Concomitant]
  25. VITAMIN E [Concomitant]
  26. CANDESARTAN (CANDESARTAN) [Concomitant]
  27. ULTRAVIST 300 [Suspect]

REACTIONS (22)
  - ANOXIC ENCEPHALOPATHY [None]
  - ANTICONVULSANT DRUG LEVEL DECREASED [None]
  - AORTIC ATHEROSCLEROSIS [None]
  - BLOOD GLUCOSE INCREASED [None]
  - CARDIAC ARREST [None]
  - CARDIOMEGALY [None]
  - COMA [None]
  - CONTRAST MEDIA REACTION [None]
  - CONVULSION [None]
  - CORONARY ARTERY ATHEROSCLEROSIS [None]
  - EFFUSION [None]
  - ELECTROCARDIOGRAM ST-T SEGMENT DEPRESSION [None]
  - ELECTROMECHANICAL DISSOCIATION [None]
  - HEPATIC STEATOSIS [None]
  - HYPOTENSION [None]
  - LARYNGITIS BACTERIAL [None]
  - MESENTERIC FIBROSIS [None]
  - METABOLIC ACIDOSIS [None]
  - MITRAL VALVE INCOMPETENCE [None]
  - PNEUMONIA [None]
  - SNEEZING [None]
  - SPLEEN CONGESTION [None]
